FAERS Safety Report 6268687-9 (Version None)
Quarter: 2009Q3

REPORT INFORMATION
  Report Type: 
  Country: None (occurrence: None)
  Receive Date: 20090713
  Receipt Date: 20090713
  Transmission Date: 20100115
  Serious: Yes (Other)
  Sender: FDA-Public Use
  Company Number: None

PATIENT
  Sex: Female

DRUGS (1)
  1. GLEEVEC [Suspect]
     Indication: SALIVARY GLAND CANCER
     Dosage: 400 MG ONCE A DAY PO
     Route: 048
     Dates: start: 20090331, end: 20090707

REACTIONS (1)
  - DRUG INEFFECTIVE [None]
